FAERS Safety Report 5565072-X (Version None)
Quarter: 2007Q4

REPORT INFORMATION
  Report Type: 
  Country: None (occurrence: None)
  Receive Date: 20071218
  Receipt Date: 20071211
  Transmission Date: 20080405
  Serious: Yes (Other)
  Sender: FDA-Public Use
  Company Number: GR-ASTRAZENECA-2007AC02421

PATIENT
  Age: 15 Year
  Sex: Female

DRUGS (6)
  1. MEROPENEM [Suspect]
  2. PHENYTOIN [Interacting]
     Dosage: RAPIDLY TAPERED AND DISCONTINUED
  3. TEICOPLANIN [Interacting]
  4. VALPROATE SODIUM [Interacting]
  5. DIAZEPAM [Concomitant]
     Indication: MYOCLONIC EPILEPSY
  6. PROPOFOL [Concomitant]
     Indication: MYOCLONIC EPILEPSY

REACTIONS (2)
  - CONVULSION [None]
  - DRUG INTERACTION [None]
